FAERS Safety Report 4880886-7 (Version None)
Quarter: 2005Q4

REPORT INFORMATION
  Report Type: 
  Country: None (occurrence: None)
  Receive Date: 20051223
  Receipt Date: 20051005
  Transmission Date: 20060501
  Serious: No
  Sender: FDA-Public Use
  Company Number: 05P-163-0313036-00

PATIENT
  Age: 64 Year
  Sex: Female
  Weight: 56.246 kg

DRUGS (15)
  1. HUMIRA [Suspect]
     Indication: RHEUMATOID ARTHRITIS
     Dosage: 40 MG, 1 IN 2 WK, SUBCUTANEOUS
     Route: 058
     Dates: start: 20050429
  2. DIGOXIN [Concomitant]
  3. LISINOPRIL [Concomitant]
  4. LEVOTHYROXINE SODIUM [Concomitant]
  5. SPIRONOLACTONE [Concomitant]
  6. METOPROLOL SUCCINATE [Concomitant]
  7. GLIPIZIDE [Concomitant]
  8. RISEDRONATE SODIUM [Concomitant]
  9. ACETYLSALICYLIC ACID SRT [Concomitant]
  10. PREDNISONE [Concomitant]
  11. RABEPRAZOLE SODIUM [Concomitant]
  12. ALPRAZOLAM [Concomitant]
  13. ZIPRASIDONE HYDROCHLORIDE [Concomitant]
  14. ATORVASTATIN CALCIUM [Concomitant]
  15. MULTIVITAMIN [Concomitant]

REACTIONS (4)
  - INJECTION SITE ERYTHEMA [None]
  - INJECTION SITE PAIN [None]
  - INJECTION SITE SWELLING [None]
  - INJECTION SITE WARMTH [None]
